FAERS Safety Report 24039521 (Version 1)
Quarter: 2024Q3

REPORT INFORMATION
  Report Type: Spontaneous
  Country: US (occurrence: US)
  Receive Date: 20240702
  Receipt Date: 20240702
  Transmission Date: 20241016
  Serious: Yes (Hospitalization)
  Sender: UPSHER-SMITH
  Company Number: US-UPSHER-SMITH LABORATORIES, LLC-2024USL00504

PATIENT
  Sex: Female
  Weight: 9.3 kg

DRUGS (1)
  1. VIGADRONE [Suspect]
     Active Substance: VIGABATRIN
     Indication: Infantile spasms
     Dosage: 700 MG (14 ML) TWICE DAILY
     Route: 048

REACTIONS (2)
  - Tuberculosis [Unknown]
  - Respiratory distress [Unknown]
